FAERS Safety Report 7170209-5 (Version None)
Quarter: 2010Q4

REPORT INFORMATION
  Report Type: 
  Country: None (occurrence: None)
  Receive Date: 20101217
  Receipt Date: 20101214
  Transmission Date: 20110411
  Serious: Yes (Hospitalization)
  Sender: FDA-Public Use
  Company Number: IT-PFIZER INC-2010085136

PATIENT
  Age: 37 Year
  Sex: Female

DRUGS (4)
  1. MEDROL [Suspect]
     Indication: RHEUMATOID ARTHRITIS
     Dosage: 4 MG, 1X/DAY
     Route: 048
     Dates: start: 20071219
  2. ENBREL [Suspect]
     Indication: RHEUMATOID ARTHRITIS
     Dosage: 50 MG, WEEKLY
     Route: 058
     Dates: start: 20080313, end: 20091101
  3. PANTORC [Concomitant]
     Dosage: 20 MG, UNK
     Route: 048
     Dates: start: 20071219
  4. COLECALCIFEROL [Concomitant]
     Dosage: 25 DROPS
     Dates: start: 20091222

REACTIONS (1)
  - OVARIAN CANCER [None]
